FAERS Safety Report 4813646-3 (Version None)
Quarter: 2005Q4

REPORT INFORMATION
  Report Type: 
  Country: None (occurrence: None)
  Receive Date: 20051028
  Receipt Date: 20041213
  Transmission Date: 20060501
  Serious: No
  Sender: FDA-Public Use
  Company Number: US-GLAXOSMITHKLINE-A0537099A

PATIENT
  Sex: Female

DRUGS (3)
  1. IMITREX [Suspect]
     Indication: MIGRAINE
     Dosage: 1SPR AS REQUIRED
     Route: 045
  2. IMITREX [Suspect]
     Dosage: 100MG AS REQUIRED
     Route: 048
  3. IMITREX [Suspect]
     Dosage: 1INJ AS REQUIRED
     Route: 058

REACTIONS (2)
  - DRUG INEFFECTIVE [None]
  - MIGRAINE [None]
